FAERS Safety Report 5612306-9 (Version None)
Quarter: 2008Q1

REPORT INFORMATION
  Report Type: 
  Country: None (occurrence: None)
  Receive Date: 20080201
  Receipt Date: 20080201
  Transmission Date: 20080703
  Serious: Yes (Hospitalization)
  Sender: FDA-Public Use
  Company Number: None

PATIENT
  Age: 70 Year
  Sex: Female
  Weight: 77.5651 kg

DRUGS (6)
  1. PACLITAXEL [Suspect]
     Dosage: 144MG 2WEEK IVPB
     Route: 042
     Dates: start: 20060519
  2. ZIAC [Concomitant]
  3. PRAVACHOL [Concomitant]
  4. PRILOSEC [Concomitant]
  5. IBUPROFEN [Concomitant]
  6. MULTI-VITAMIN [Concomitant]

REACTIONS (1)
  - ALVEOLITIS ALLERGIC [None]
